FAERS Safety Report 6191737-5 (Version None)
Quarter: 2009Q2

REPORT INFORMATION
  Report Type: 
  Country: None (occurrence: None)
  Receive Date: 20090515
  Receipt Date: 20090505
  Transmission Date: 20091009
  Serious: Yes (Hospitalization, Other)
  Sender: FDA-Public Use
  Company Number: US-PFIZER INC-2009191235

PATIENT

DRUGS (10)
  1. SUTENT [Suspect]
     Indication: RENAL CELL CARCINOMA
     Dosage: 50 MG, 1X/DAY
     Route: 048
     Dates: start: 20090301
  2. ATIVAN [Concomitant]
     Dosage: UNK
  3. NEURONTIN [Concomitant]
     Dosage: UNK
  4. NEXIUM [Concomitant]
  5. TOPROL-XL [Concomitant]
     Dosage: UNK
  6. CELEXA [Concomitant]
     Dosage: UNK
  7. ZOFRAN [Concomitant]
     Dosage: UNK
  8. FENTANYL [Concomitant]
     Dosage: UNK
  9. PROMETHAZINE [Concomitant]
     Dosage: UNK
  10. DILAUDID [Concomitant]
     Dosage: UNK

REACTIONS (3)
  - ASTHENIA [None]
  - LOSS OF CONSCIOUSNESS [None]
  - ORAL PAIN [None]
